FAERS Safety Report 5688368-X (Version None)
Quarter: 2008Q1

REPORT INFORMATION
  Report Type: 
  Country: None (occurrence: None)
  Receive Date: 20080328
  Receipt Date: 20080328
  Transmission Date: 20080703
  Serious: Yes (Life-Threatening, Hospitalization)
  Sender: FDA-Public Use
  Company Number: None

PATIENT
  Age: 54 Year
  Sex: Male
  Weight: 94 kg

DRUGS (1)
  1. TACROLIMUS [Suspect]
     Indication: TRANSPLANT
     Dosage: 5MG Q12H PO
     Route: 048
     Dates: start: 20080225, end: 20080229

REACTIONS (3)
  - HAEMOLYTIC URAEMIC SYNDROME [None]
  - POST PROCEDURAL COMPLICATION [None]
  - THROMBOTIC THROMBOCYTOPENIC PURPURA [None]
